FAERS Safety Report 25403625 (Version 3)
Quarter: 2025Q4

REPORT INFORMATION
  Report Type: Report from Study
  Country: US (occurrence: US)
  Receive Date: 20250605
  Receipt Date: 20251211
  Transmission Date: 20260117
  Serious: Yes (Hospitalization)
  Sender: ABBVIE
  Company Number: US-ABBVIE-5956340

PATIENT
  Age: 64 Year
  Sex: Male
  Weight: 72 kg

DRUGS (23)
  1. HUMIRA [Suspect]
     Active Substance: ADALIMUMAB
     Indication: Rheumatoid arthritis
     Dosage: CITRATE FREE
     Route: 058
     Dates: start: 2021
  2. MAGNESIUM [Concomitant]
     Active Substance: MAGNESIUM
     Indication: Gastric bypass
  3. CALCIUM [Concomitant]
     Active Substance: CALCIUM
     Indication: Bone disorder
  4. Acxarbose [Concomitant]
     Indication: Product used for unknown indication
  5. ROSUVASTATIN [Concomitant]
     Active Substance: ROSUVASTATIN
     Indication: Myopathy
     Dates: start: 20200329
  6. HYDROCHLOROTHIAZIDE [Concomitant]
     Active Substance: HYDROCHLOROTHIAZIDE
     Indication: Chronic kidney disease
     Dates: start: 20221028
  7. POTASSIUM CITRATE [Concomitant]
     Active Substance: POTASSIUM CITRATE
     Indication: Nephrolithiasis
  8. HUMIRA [Concomitant]
     Active Substance: ADALIMUMAB
     Indication: Rheumatoid arthritis
     Dosage: AUTO PEN INJECTION
     Route: 058
     Dates: start: 20211103
  9. TYLENOL [Concomitant]
     Active Substance: ACETAMINOPHEN
     Indication: Pain
     Dosage: 8HR EXTEND RELEASE
     Dates: start: 20220215
  10. VITAMIN B12 [Concomitant]
     Active Substance: CYANOCOBALAMIN
     Indication: Product used for unknown indication
  11. ENTRESTO [Concomitant]
     Active Substance: SACUBITRIL\VALSARTAN
     Indication: Cardiomyopathy
     Dosage: 25 MG
     Dates: start: 20230701
  12. TAMSULOSIN [Concomitant]
     Active Substance: TAMSULOSIN
     Indication: Prostatitis
     Route: 048
     Dates: start: 20191122
  13. VOLTAREN [Concomitant]
     Active Substance: DICLOFENAC SODIUM
     Indication: Pain
     Dosage: TIME INTERVAL: 0.33333333 DAYS
     Route: 061
  14. ESOMEPRAZOLE MAGNESIUM [Concomitant]
     Active Substance: ESOMEPRAZOLE MAGNESIUM
     Indication: Gastrooesophageal reflux disease
     Route: 048
     Dates: start: 20191122
  15. HYDROXYCHLOROQUINE [Concomitant]
     Active Substance: HYDROXYCHLOROQUINE
     Indication: Rheumatoid arthritis
     Route: 048
     Dates: start: 20221119
  16. FLOVENT HFA [Concomitant]
     Active Substance: FLUTICASONE PROPIONATE
     Indication: Chronic obstructive pulmonary disease
     Dates: start: 20191122
  17. CARVEDILOL [Concomitant]
     Active Substance: CARVEDILOL
     Indication: Blood pressure measurement
     Route: 048
     Dates: start: 20191122
  18. MIRTAZAPINE [Concomitant]
     Active Substance: MIRTAZAPINE
     Indication: Anxiety
     Route: 048
     Dates: start: 20191122
  19. GABAPENTIN [Concomitant]
     Active Substance: GABAPENTIN
     Indication: Dyspnoea paroxysmal nocturnal
     Dosage: TIME INTERVAL: 0.33333333 DAYS
     Route: 048
  20. ASPIRIN [Concomitant]
     Active Substance: ASPIRIN
     Indication: Anticoagulant therapy
     Dates: start: 20191122
  21. IRON [Concomitant]
     Active Substance: IRON
     Indication: Anaemia
  22. Librexa [Concomitant]
     Indication: Product used for unknown indication
  23. ACARBOSE [Concomitant]
     Active Substance: ACARBOSE
     Indication: Product used for unknown indication

REACTIONS (2)
  - Hypoglycaemia [Not Recovered/Not Resolved]
  - COVID-19 [Recovered/Resolved]

NARRATIVE: CASE EVENT DATE: 20230201
